FAERS Safety Report 21526402 (Version 3)
Quarter: 2022Q4

REPORT INFORMATION
  Report Type: Report from Study
  Country: US (occurrence: US)
  Receive Date: 20221031
  Receipt Date: 20221223
  Transmission Date: 20230113
  Serious: No
  Sender: FDA-Public Use
  Company Number: US-NOVARTISTESTPH-NVSC2022US241972

PATIENT
  Age: 60 Year
  Sex: Male

DRUGS (1)
  1. ENTRESTO [Suspect]
     Active Substance: SACUBITRIL\VALSARTAN
     Indication: Cardiac failure
     Dosage: 0.5 DOSAGE FORM, BID ( ONE TAB IN THE AM AND 1/2 TAB IN THE PM)
     Route: 065

REACTIONS (7)
  - Hypertension [Unknown]
  - Cough [Unknown]
  - Influenza [Unknown]
  - Blood pressure fluctuation [Unknown]
  - COVID-19 [Unknown]
  - Rhinorrhoea [Unknown]
  - Wrong technique in product usage process [Unknown]

NARRATIVE: CASE EVENT DATE: 20220601
